FAERS Safety Report 13851420 (Version 2)
Quarter: 2017Q3

REPORT INFORMATION
  Report Type: Report from Study
  Country: US (occurrence: US)
  Receive Date: 20170810
  Receipt Date: 20170810
  Transmission Date: 20171127
  Serious: No
  Sender: FDA-Public Use
  Company Number: PHEH2016US034299

PATIENT

DRUGS (1)
  1. TRAVATAN Z [Suspect]
     Active Substance: TRAVOPROST
     Indication: PRODUCT USED FOR UNKNOWN INDICATION
     Route: 065

REACTIONS (6)
  - Ocular hyperaemia [Unknown]
  - Eye disorder [Unknown]
  - Intraocular pressure fluctuation [Unknown]
  - Eye irritation [Unknown]
  - Intraocular pressure decreased [Unknown]
  - Product use issue [Unknown]
